FAERS Safety Report 8844729 (Version 1)
Quarter: 2012Q4

REPORT INFORMATION
  Report Type: 
  Country: LK (occurrence: LK)
  Receive Date: 20121017
  Receipt Date: 20121017
  Transmission Date: 20130627
  Serious: Yes (Death, Hospitalization)
  Sender: FDA-Public Use
  Company Number: LK-JNJFOC-20121001542

PATIENT
  Age: 32 Month
  Sex: Male

DRUGS (2)
  1. CALPOL [Suspect]
     Route: 048
  2. CALPOL [Suspect]
     Indication: PYREXIA
     Dosage: The patient consumed over 1000mg of paracetamol
     Route: 048
     Dates: start: 20120805, end: 20120805

REACTIONS (12)
  - Toxicity to various agents [Fatal]
  - Overdose [Fatal]
  - Multi-organ failure [Fatal]
  - Anaphylactic reaction [None]
  - Shock [None]
  - Hypoglycaemia [None]
  - Hyperglycaemia [None]
  - Acute hepatic failure [None]
  - Subarachnoid haemorrhage [None]
  - Brain oedema [None]
  - Hyponatraemia [None]
  - Hypokalaemia [None]
